FAERS Safety Report 8493882 (Version 2)
Quarter: 2013Q4

REPORT INFORMATION
  Report Type: Report from Study
  Country: US (occurrence: US)
  Receive Date: 20120404
  Receipt Date: 20131017
  Transmission Date: 20140711
  Serious: Yes (Death, Hospitalization)
  Sender: FDA-Public Use
  Company Number: US-CELGENEUS-163-50794-12033408

PATIENT
  Age: 82 Year
  Sex: Male
  Weight: 65 kg

DRUGS (5)
  1. VIDAZA [Suspect]
     Indication: ACUTE MYELOID LEUKAEMIA
     Route: 058
     Dates: start: 20120105
  2. VIDAZA [Suspect]
     Route: 058
     Dates: start: 20120119, end: 20120125
  3. GEMTUZUMAB OZOGAMICIN [Suspect]
     Indication: ACUTE MYELOID LEUKAEMIA
     Route: 041
     Dates: start: 20120105
  4. GEMTUZUMAB OZOGAMICIN [Suspect]
     Route: 041
     Dates: start: 20120119, end: 20120126
  5. ARA-C [Concomitant]
     Indication: ACUTE MYELOID LEUKAEMIA
     Route: 065
     Dates: start: 20120213

REACTIONS (1)
  - Sepsis [Fatal]
